FAERS Safety Report 22537742 (Version 1)
Quarter: 2023Q2

REPORT INFORMATION
  Report Type: Spontaneous
  Country: DE (occurrence: DE)
  Receive Date: 20230608
  Receipt Date: 20230608
  Transmission Date: 20230722
  Serious: Yes (Other)
  Sender: FDA-Public Use
  Company Number: DE-AMERICAN REGENT INC-2023001391

PATIENT
  Age: 40 Year
  Sex: Male

DRUGS (1)
  1. FERINJECT [Suspect]
     Active Substance: FERRIC CARBOXYMALTOSE
     Indication: Product used for unknown indication
     Dosage: ASSUMED DOSE OF 500 MG, APPROXIMATELY 10 TIMES
     Route: 042
     Dates: start: 202301, end: 202304

REACTIONS (4)
  - Osteoporosis [Unknown]
  - Haemoglobin decreased [Unknown]
  - Osteomalacia [Unknown]
  - Blood phosphorus decreased [Unknown]

NARRATIVE: CASE EVENT DATE: 20230101
